FAERS Safety Report 7490842-0 (Version None)
Quarter: 2011Q2

REPORT INFORMATION
  Report Type: 
  Country: None (occurrence: None)
  Receive Date: 20110517
  Receipt Date: 20110517
  Transmission Date: 20111010
  Serious: No
  Sender: FDA-Public Use
  Company Number: None

PATIENT
  Sex: Male

DRUGS (1)
  1. LORAZEPAM [Suspect]
     Dosage: 0.5 MG

REACTIONS (3)
  - FATIGUE [None]
  - PRODUCT QUALITY ISSUE [None]
  - FEELING ABNORMAL [None]
